FAERS Safety Report 24958804 (Version 1)
Quarter: 2025Q1

REPORT INFORMATION
  Report Type: Spontaneous
  Country: US (occurrence: US)
  Receive Date: 20250212
  Receipt Date: 20250212
  Transmission Date: 20250408
  Serious: No
  Sender: ALCON
  Company Number: US-ALCON LABORATORIES-ALC2024US003199

PATIENT

DRUGS (1)
  1. RHOPRESSA [Suspect]
     Active Substance: NETARSUDIL MESYLATE
     Indication: Product used for unknown indication
     Route: 047
     Dates: start: 202402

REACTIONS (5)
  - Skin exfoliation [Recovered/Resolved]
  - Eye inflammation [Recovered/Resolved]
  - Rash [Recovered/Resolved]
  - Eye pruritus [Recovered/Resolved]
  - Ocular hyperaemia [Recovered/Resolved]

NARRATIVE: CASE EVENT DATE: 20240501
